FAERS Safety Report 11120408 (Version 2)
Quarter: 2015Q2

REPORT INFORMATION
  Report Type: Spontaneous
  Country: DK (occurrence: DK)
  Receive Date: 20150518
  Receipt Date: 20150530
  Transmission Date: 20150821
  Serious: Yes (Hospitalization, Other)
  Sender: FDA-Public Use
  Company Number: PHHY2015DK056820

PATIENT
  Age: 34 Year
  Sex: Female

DRUGS (2)
  1. PROPRANOLOL [Concomitant]
     Active Substance: PROPRANOLOL\PROPRANOLOL HYDROCHLORIDE
     Indication: MIGRAINE
     Route: 065
  2. DESOGESTREL AND ETHINYL ESTRADIOL [Suspect]
     Active Substance: DESOGESTREL\ETHINYL ESTRADIOL
     Indication: PRODUCT USED FOR UNKNOWN INDICATION
     Route: 065
     Dates: start: 2005, end: 20140531

REACTIONS (17)
  - Hypotonia [Unknown]
  - Hypertension [Unknown]
  - Muscular weakness [Unknown]
  - Speech disorder [Unknown]
  - Memory impairment [Unknown]
  - Hyperaesthesia [Unknown]
  - Dizziness [Unknown]
  - Infarction [Unknown]
  - Hypoaesthesia [Unknown]
  - Aphasia [Unknown]
  - Asthenia [Unknown]
  - Emotional distress [Unknown]
  - Headache [Unknown]
  - General physical health deterioration [Unknown]
  - Cerebral thrombosis [Unknown]
  - Disturbance in attention [Unknown]
  - Fatigue [Unknown]

NARRATIVE: CASE EVENT DATE: 201405
